FAERS Safety Report 9690313 (Version 1)
Quarter: 2013Q4

REPORT INFORMATION
  Report Type: Report from Study
  Country: US (occurrence: US)
  Receive Date: 20131115
  Receipt Date: 20131115
  Transmission Date: 20140711
  Serious: Yes (Other)
  Sender: FDA-Public Use
  Company Number: US-JNJFOC-20131104509

PATIENT
  Age: 48 Year
  Sex: Female
  Weight: 71.67 kg

DRUGS (8)
  1. REMICADE [Suspect]
     Indication: RHEUMATOID ARTHRITIS
     Dosage: 1ST INFUSION
     Route: 042
     Dates: start: 20130812
  2. REMICADE [Suspect]
     Indication: RHEUMATOID ARTHRITIS
     Dosage: 3RD INFUSION
     Route: 042
     Dates: start: 20130926
  3. REMICADE [Suspect]
     Indication: RHEUMATOID ARTHRITIS
     Dosage: 4TH INFUSION
     Route: 042
     Dates: start: 20131031
  4. REMICADE [Suspect]
     Indication: RHEUMATOID ARTHRITIS
     Dosage: 2ND INFUSION
     Route: 042
     Dates: start: 20130826
  5. BOTOX [Concomitant]
     Indication: MIGRAINE
     Route: 030
     Dates: start: 2009
  6. BOTOX [Concomitant]
     Indication: OCCIPITAL NEURALGIA
     Route: 030
     Dates: start: 2009
  7. TRAMADOL [Concomitant]
     Indication: PAIN
     Route: 048
  8. CYCLOBENZAPRINE [Concomitant]
     Indication: HYPOTONIA
     Route: 048

REACTIONS (5)
  - Asthma [Recovered/Resolved]
  - Low density lipoprotein increased [Not Recovered/Not Resolved]
  - Vitamin B12 increased [Not Recovered/Not Resolved]
  - Reaction to drug excipients [Not Recovered/Not Resolved]
  - Fatigue [Recovering/Resolving]
